FAERS Safety Report 6217838-0 (Version None)
Quarter: 2009Q2

REPORT INFORMATION
  Report Type: 
  Country: None (occurrence: None)
  Receive Date: 20090608
  Receipt Date: 20080603
  Transmission Date: 20091009
  Serious: Yes (Hospitalization, Other)
  Sender: FDA-Public Use
  Company Number: US-ASTRAZENECA-2008UW02847

PATIENT
  Age: 52 Year
  Sex: Male
  Weight: 144.2 kg

DRUGS (18)
  1. SEROQUEL [Suspect]
     Indication: BIPOLAR DISORDER
     Route: 048
     Dates: start: 20020201, end: 20060305
  2. SEROQUEL [Suspect]
     Indication: INSOMNIA
     Route: 048
     Dates: start: 20020201, end: 20060305
  3. SEROQUEL [Suspect]
     Indication: SLEEP DISORDER
     Route: 048
     Dates: start: 20020201, end: 20060305
  4. SEROQUEL [Suspect]
     Dosage: 50 - 500 MG
     Route: 048
     Dates: start: 20020418, end: 20060309
  5. SEROQUEL [Suspect]
     Dosage: 50 - 500 MG
     Route: 048
     Dates: start: 20020418, end: 20060309
  6. SEROQUEL [Suspect]
     Dosage: 50 - 500 MG
     Route: 048
     Dates: start: 20020418, end: 20060309
  7. GEODON [Concomitant]
  8. GEODON [Concomitant]
     Route: 048
     Dates: start: 20031217
  9. ZYPREXA [Concomitant]
     Dosage: 10 MG, 20 MG
  10. ZYPREXA [Concomitant]
     Dosage: 10 - 20 MG
     Route: 048
     Dates: end: 20070201
  11. TRAZODONE HCL [Concomitant]
     Dates: start: 19980101
  12. CITALOPRAM HYDROBROMIDE [Concomitant]
     Dates: start: 19980101
  13. SYMLIN [Concomitant]
     Route: 030
  14. AMBIEN [Concomitant]
     Dosage: 10 - 12 MG
     Route: 048
     Dates: start: 19960809, end: 20071031
  15. LEXAPRO [Concomitant]
     Route: 048
     Dates: start: 20060301
  16. CELEXA [Concomitant]
     Route: 048
     Dates: start: 20041027
  17. SYNTHROID [Concomitant]
     Route: 048
  18. HYDROCHLOROTHIAZIDE [Concomitant]
     Route: 048
     Dates: start: 20020501

REACTIONS (13)
  - ANGINA PECTORIS [None]
  - ANXIETY [None]
  - BLOOD CHOLESTEROL INCREASED [None]
  - BLOOD TRIGLYCERIDES INCREASED [None]
  - CARDIAC DISORDER [None]
  - DEPRESSION [None]
  - DIABETES MELLITUS [None]
  - LIVER FUNCTION TEST ABNORMAL [None]
  - OBESITY [None]
  - THYROID DISORDER [None]
  - TYPE 1 DIABETES MELLITUS [None]
  - TYPE 2 DIABETES MELLITUS [None]
  - WEIGHT INCREASED [None]
